FAERS Safety Report 9722862 (Version 1)
Quarter: 2013Q4

REPORT INFORMATION
  Report Type: Spontaneous
  Country: US (occurrence: None)
  Receive Date: 20131126
  Receipt Date: 20131126
  Transmission Date: 20140711
  Serious: Yes (Disabling)
  Sender: FDA-Public Use
  Company Number: 2013UA009789

PATIENT
  Age: 45 Year
  Sex: Female
  Weight: 94 kg

DRUGS (5)
  1. ALOXI [Suspect]
     Indication: PROPHYLAXIS OF NAUSEA AND VOMITING
     Dosage: 0.25 MG, SINGLE, INTRAVENOUS
     Route: 042
     Dates: start: 20131030, end: 20131030
  2. FOSAPREPITANT [Suspect]
     Indication: PREMEDICATION
     Route: 042
     Dates: start: 20131030, end: 20131030
  3. DEXAMETHASONE (DEXAMETHASONE) [Suspect]
     Indication: PREMEDICATION
     Route: 042
     Dates: start: 20131030, end: 20131030
  4. ETOPOSIDE (ETOPOSIDE) [Suspect]
     Indication: LUNG NEOPLASM MALIGNANT
     Route: 042
     Dates: start: 20131030, end: 20131030
  5. CARBOPLATIN (CARBOPLATIN) [Suspect]
     Indication: LUNG NEOPLASM MALIGNANT
     Route: 042
     Dates: start: 20131030, end: 20131030

REACTIONS (2)
  - Nausea [None]
  - Vomiting [None]
